FAERS Safety Report 5099154-6 (Version None)
Quarter: 2006Q3

REPORT INFORMATION
  Report Type: 
  Country: None (occurrence: None)
  Receive Date: 20060731
  Receipt Date: 20050907
  Transmission Date: 20061208
  Serious: Yes (Other)
  Sender: FDA-Public Use
  Company Number: 217367

PATIENT
  Age: 66 Year
  Sex: Male

DRUGS (5)
  1. RITUXAN [Suspect]
     Indication: CHRONIC LYMPHOCYTIC LEUKAEMIA
     Dosage: 785 MG,
     Dates: start: 20050829, end: 20050829
  2. TYLENOL (CAPLET) [Concomitant]
  3. BENADRYL [Concomitant]
  4. PREDNISONE TAB [Concomitant]
  5. ALLOPURINOL [Concomitant]

REACTIONS (3)
  - DYSPNOEA [None]
  - HYPERTENSION [None]
  - HYPOXIA [None]
